FAERS Safety Report 7488104-0 (Version None)
Quarter: 2011Q2

REPORT INFORMATION
  Report Type: 
  Country: None (occurrence: None)
  Receive Date: 20110517
  Receipt Date: 20110510
  Transmission Date: 20111010
  Serious: Yes (Hospitalization)
  Sender: FDA-Public Use
  Company Number: DL2011-0332

PATIENT
  Age: 28 Year
  Sex: Female

DRUGS (2)
  1. MIFEPRISTONE (MIFEPREX) [Suspect]
     Indication: ABORTION INDUCED
     Dosage: 2300 MG, ORAL
     Route: 048
     Dates: start: 20110322
  2. AZITHROMYCIN [Concomitant]

REACTIONS (2)
  - MUSCLE SPASMS [None]
  - HAEMORRHAGE [None]
